FAERS Safety Report 6267961-X (Version None)
Quarter: 2009Q3

REPORT INFORMATION
  Report Type: 
  Country: None (occurrence: None)
  Receive Date: 20090713
  Receipt Date: 20090629
  Transmission Date: 20100115
  Serious: Yes (Other)
  Sender: FDA-Public Use
  Company Number: 2009-198690-NL

PATIENT
  Age: 55 Year
  Sex: Female

DRUGS (7)
  1. REMERGIL [Suspect]
     Indication: DEPRESSION
     Dosage: 30 MG DAILY ORAL
     Route: 048
     Dates: start: 20090126
  2. LORAZEPAM [Suspect]
     Dosage: 1.5 MG DAILY
     Dates: start: 20090127, end: 20090128
  3. LORAZEPAM [Suspect]
     Dosage: 1 MG DAILY
     Dates: start: 20090129, end: 20090202
  4. LORAZEPAM [Suspect]
     Dosage: 0.5 MG DAILY
     Dates: start: 20090203, end: 20090205
  5. LORAZEPAM [Suspect]
     Dosage: 1 MG DAILY
     Dates: start: 20090206, end: 20090210
  6. LORAZEPAM [Suspect]
     Dosage: 0.5 MG DAILY
     Dates: start: 20090211, end: 20090214
  7. ZOPICLON [Concomitant]

REACTIONS (5)
  - FACIAL BONES FRACTURE [None]
  - FALL [None]
  - GRAND MAL CONVULSION [None]
  - JAW FRACTURE [None]
  - LOSS OF CONSCIOUSNESS [None]
